FAERS Safety Report 24443582 (Version 1)
Quarter: 2024Q4

REPORT INFORMATION
  Report Type: Spontaneous
  Country: US (occurrence: US)
  Receive Date: 20241016
  Receipt Date: 20241016
  Transmission Date: 20250114
  Serious: Yes (Hospitalization, Other)
  Sender: HIKMA
  Company Number: HIKM2408302

PATIENT
  Age: 85 Year
  Sex: Male

DRUGS (1)
  1. INFUMORPH [Suspect]
     Active Substance: MORPHINE SULFATE
     Indication: Spinal pain
     Dosage: 3 MILLIGRAM
     Route: 037
     Dates: start: 20240909

REACTIONS (2)
  - Drug intolerance [Unknown]
  - Overdose [Unknown]

NARRATIVE: CASE EVENT DATE: 20240909
